FAERS Safety Report 5537477-4 (Version None)
Quarter: 2007Q4

REPORT INFORMATION
  Report Type: 
  Country: None (occurrence: None)
  Receive Date: 20071207
  Receipt Date: 20071126
  Transmission Date: 20080405
  Serious: Yes (Hospitalization)
  Sender: FDA-Public Use
  Company Number: US-AMGEN-STX254102

PATIENT
  Sex: Female

DRUGS (2)
  1. ENBREL [Suspect]
     Indication: RHEUMATOID ARTHRITIS
     Route: 058
     Dates: start: 19980101
  2. METHOTREXATE [Concomitant]
     Dates: start: 20040101

REACTIONS (9)
  - BACK PAIN [None]
  - CARDIAC DISORDER [None]
  - FALL [None]
  - HIP ARTHROPLASTY [None]
  - HYPOTONIA [None]
  - JOINT INJURY [None]
  - OSTEOARTHRITIS [None]
  - PERIPHERAL ARTERY ANEURYSM [None]
  - SPINAL SUPPORT [None]
